FAERS Safety Report 14100364 (Version 7)
Quarter: 2018Q4

REPORT INFORMATION
  Report Type: Spontaneous
  Country: US (occurrence: US)
  Receive Date: 20171017
  Receipt Date: 20181206
  Transmission Date: 20190204
  Serious: Yes (Hospitalization)
  Sender: FDA-Public Use
  Company Number: US-ACTELION-A-NJ2017-161122

PATIENT
  Age: 35 Year
  Sex: Female
  Weight: 60.32 kg

DRUGS (5)
  1. REVATIO [Concomitant]
     Active Substance: SILDENAFIL CITRATE
  2. XARELTO [Concomitant]
     Active Substance: RIVAROXABAN
  3. WARFARIN [Concomitant]
     Active Substance: WARFARIN
     Dosage: 5 MG, UNK
  4. LETAIRIS [Concomitant]
     Active Substance: AMBRISENTAN
  5. VELETRI [Suspect]
     Active Substance: EPOPROSTENOL
     Indication: PULMONARY ARTERIAL HYPERTENSION
     Dosage: 50 NG/KG, PER MIN
     Route: 042
     Dates: start: 20130415, end: 20181107

REACTIONS (10)
  - Transplant evaluation [Unknown]
  - Flushing [Not Recovered/Not Resolved]
  - Lung transplant [Recovering/Resolving]
  - Chest pain [Unknown]
  - Pain in jaw [Not Recovered/Not Resolved]
  - Catheter management [Unknown]
  - Palpitations [Unknown]
  - Dyspnoea exertional [Not Recovered/Not Resolved]
  - Device occlusion [Unknown]
  - Fatigue [Unknown]

NARRATIVE: CASE EVENT DATE: 201604
